FAERS Safety Report 19135122 (Version 1)
Quarter: 2021Q2

REPORT INFORMATION
  Report Type: Spontaneous
  Country: US (occurrence: US)
  Receive Date: 20210414
  Receipt Date: 20210414
  Transmission Date: 20210717
  Serious: Yes (Other)
  Sender: FDA-Public Use
  Company Number: US-SA-2021SA112122

PATIENT
  Age: 53 Year
  Sex: Female

DRUGS (2)
  1. DOXEPIN [Concomitant]
     Active Substance: DOXEPIN
     Dosage: UNK
  2. ZOLPIDEM TARTRATE. [Suspect]
     Active Substance: ZOLPIDEM TARTRATE
     Indication: INSOMNIA
     Dosage: 10 MG, HS

REACTIONS (18)
  - Seizure [Unknown]
  - Vomiting [Unknown]
  - Sensory overload [Unknown]
  - Withdrawal syndrome [Unknown]
  - Illness [Not Recovered/Not Resolved]
  - Hallucination [Unknown]
  - Product use issue [Unknown]
  - Panic attack [Unknown]
  - Hot flush [Unknown]
  - Nausea [Unknown]
  - Visual impairment [Unknown]
  - Feeding disorder [Unknown]
  - Gastrointestinal disorder [Unknown]
  - Insomnia [Unknown]
  - Anxiety [Unknown]
  - Pain [Unknown]
  - Headache [Unknown]
  - Feeling abnormal [Unknown]

NARRATIVE: CASE EVENT DATE: 202012
